FAERS Safety Report 15981554 (Version 1)
Quarter: 2019Q1

REPORT INFORMATION
  Report Type: Spontaneous
  Country: TR (occurrence: TR)
  Receive Date: 20190219
  Receipt Date: 20190219
  Transmission Date: 20190418
  Serious: Yes (Hospitalization)
  Sender: FDA-Public Use
  Company Number: TR-BAYER-2019-011467

PATIENT
  Age: 18 Year
  Sex: Female

DRUGS (1)
  1. YASMIN [Suspect]
     Active Substance: DROSPIRENONE\ETHINYL ESTRADIOL
     Dosage: UNK
     Route: 048
     Dates: start: 20181214

REACTIONS (5)
  - Intentional product misuse [None]
  - Contraindicated product administered [None]
  - Intentional overdose [None]
  - Haemorrhage in pregnancy [None]
  - Maternal exposure during pregnancy [None]

NARRATIVE: CASE EVENT DATE: 20181214
